FAERS Safety Report 7772201-6 (Version None)
Quarter: 2011Q3

REPORT INFORMATION
  Report Type: 
  Country: None (occurrence: None)
  Receive Date: 20110922
  Receipt Date: 20101027
  Transmission Date: 20111222
  Serious: No
  Sender: FDA-Public Use
  Company Number: US-ASTRAZENECA-2010SE50959

PATIENT
  Age: 47 Year
  Sex: Female
  Weight: 85.7 kg

DRUGS (6)
  1. SEROQUEL XR [Suspect]
     Indication: BIPOLAR DISORDER
     Route: 048
     Dates: start: 20101026
  2. AMBIEN [Concomitant]
  3. AMLODIPINE [Concomitant]
  4. WELLBUTRIN [Concomitant]
  5. ALPRAZOLAM [Concomitant]
  6. SIMVASTATIN [Concomitant]

REACTIONS (4)
  - CHEST DISCOMFORT [None]
  - HYPOAESTHESIA ORAL [None]
  - HYPOAESTHESIA [None]
  - FEELING ABNORMAL [None]
